FAERS Safety Report 11686002 (Version 1)
Quarter: 2015Q4

REPORT INFORMATION
  Report Type: Report from Study
  Country: US (occurrence: US)
  Receive Date: 20151030
  Receipt Date: 20151030
  Transmission Date: 20160304
  Serious: Yes (Other)
  Sender: FDA-Public Use
  Company Number: US-ABBVIE-15K-163-1488797-00

PATIENT
  Sex: Female
  Weight: 57.66 kg

DRUGS (3)
  1. HUMIRA [Suspect]
     Active Substance: ADALIMUMAB
     Indication: CROHN^S DISEASE
     Route: 058
     Dates: start: 200903
  2. ALBUTEROL. [Concomitant]
     Active Substance: ALBUTEROL
     Indication: ASTHMA
  3. TRICOR [Concomitant]
     Active Substance: FENOFIBRATE
     Indication: BLOOD CHOLESTEROL INCREASED
     Dates: start: 2003

REACTIONS (11)
  - Spinal column stenosis [Recovered/Resolved]
  - Rectal haemorrhage [Not Recovered/Not Resolved]
  - Mobility decreased [Recovered/Resolved]
  - Carpal tunnel syndrome [Not Recovered/Not Resolved]
  - Headache [Recovering/Resolving]
  - Bursitis [Recovered/Resolved]
  - Arthralgia [Not Recovered/Not Resolved]
  - Peripheral coldness [Not Recovered/Not Resolved]
  - Adhesion [Not Recovered/Not Resolved]
  - Musculoskeletal pain [Recovered/Resolved]
  - Insomnia [Recovered/Resolved]

NARRATIVE: CASE EVENT DATE: 2010
